FAERS Safety Report 24244799 (Version 1)
Quarter: 2024Q3

REPORT INFORMATION
  Report Type: Spontaneous
  Country: US (occurrence: US)
  Receive Date: 20240823
  Receipt Date: 20240823
  Transmission Date: 20241017
  Serious: Yes (Death, Other)
  Sender: OTSUKA
  Company Number: US-OTSUKA-2024_022873

PATIENT
  Age: 64 Year
  Sex: Female

DRUGS (2)
  1. REXULTI [Suspect]
     Active Substance: BREXPIPRAZOLE
     Indication: Antidepressant therapy
     Dosage: LOW DOSE
     Route: 065
     Dates: start: 202403
  2. REXULTI [Suspect]
     Active Substance: BREXPIPRAZOLE
     Dosage: UPPED DOSAGE
     Route: 065
     Dates: start: 2024

REACTIONS (9)
  - Death [Fatal]
  - Speech disorder [Unknown]
  - Adverse drug reaction [Unknown]
  - Gait disturbance [Unknown]
  - Crying [Unknown]
  - Loss of personal independence in daily activities [Unknown]
  - Aggression [Unknown]
  - Mental disorder [Unknown]
  - Somnolence [Unknown]

NARRATIVE: CASE EVENT DATE: 20240301
